FAERS Safety Report 8042179-9 (Version None)
Quarter: 2011Q4

REPORT INFORMATION
  Report Type: 
  Country: None (occurrence: None)
  Receive Date: 20111202
  Receipt Date: 20101112
  Transmission Date: 20120403
  Serious: Yes (Life-Threatening, Hospitalization, Other)
  Sender: FDA-Public Use
  Company Number: 2010SP059901

PATIENT
  Age: 31 Year
  Sex: Female

DRUGS (2)
  1. NUVARING [Suspect]
     Indication: CONTRACEPTION
     Dates: start: 20100101
  2. SYNTHROID [Concomitant]

REACTIONS (2)
  - PULMONARY EMBOLISM [None]
  - MIGRAINE [None]
